FAERS Safety Report 23201015 (Version 3)
Quarter: 2024Q1

REPORT INFORMATION
  Report Type: Other
  Country: US (occurrence: US)
  Receive Date: 20231118
  Receipt Date: 20240210
  Transmission Date: 20240409
  Serious: No
  Sender: FDA-Public Use
  Company Number: US-TRAVERE-2023TVT00492

PATIENT
  Age: 36 Year
  Sex: Female

DRUGS (8)
  1. FILSPARI [Suspect]
     Active Substance: SPARSENTAN
     Indication: IgA nephropathy
     Dosage: 200 MG
     Route: 048
     Dates: start: 20230812
  2. ROSUVASTATIN CALCIUM [Concomitant]
     Active Substance: ROSUVASTATIN CALCIUM
  3. CYCLOBENZAPRINE [Concomitant]
     Active Substance: CYCLOBENZAPRINE
  4. AMLODIPINE BESYLATE [Concomitant]
     Active Substance: AMLODIPINE BESYLATE
  5. METOPROLOL SUCCINATE [Concomitant]
     Active Substance: METOPROLOL SUCCINATE
  6. ALLOPURINOL [Concomitant]
     Active Substance: ALLOPURINOL
  7. JARDIANCE [Concomitant]
     Active Substance: EMPAGLIFLOZIN
  8. METOPROLOL TARTRATE [Concomitant]
     Active Substance: METOPROLOL TARTRATE

REACTIONS (4)
  - Contusion [Recovered/Resolved]
  - Dysstasia [Recovering/Resolving]
  - Drug ineffective [Unknown]
  - Dizziness [None]

NARRATIVE: CASE EVENT DATE: 20240101
